FAERS Safety Report 7102198-3 (Version None)
Quarter: 2010Q4

REPORT INFORMATION
  Report Type: 
  Country: None (occurrence: None)
  Receive Date: 20101115
  Receipt Date: 20101104
  Transmission Date: 20110411
  Serious: No
  Sender: FDA-Public Use
  Company Number: US-BIOGENIDEC-2010BI023552

PATIENT
  Age: 37 Year
  Sex: Female

DRUGS (2)
  1. TYSABRI [Suspect]
     Indication: MULTIPLE SCLEROSIS
     Route: 042
     Dates: start: 20070417
  2. AVONEX [Concomitant]
     Indication: MULTIPLE SCLEROSIS
     Route: 030

REACTIONS (6)
  - CENTRAL VENOUS CATHETERISATION [None]
  - FATIGUE [None]
  - FUNGAL SKIN INFECTION [None]
  - GAIT DISTURBANCE [None]
  - POOR VENOUS ACCESS [None]
  - VISUAL ACUITY REDUCED [None]
